FAERS Safety Report 14822954 (Version 4)
Quarter: 2019Q3

REPORT INFORMATION
  Report Type: Report from Study
  Country: TW (occurrence: TW)
  Receive Date: 20180427
  Receipt Date: 20190926
  Transmission Date: 20191004
  Serious: Yes (Other)
  Sender: FDA-Public Use
  Company Number: PHHY2018TW074527

PATIENT
  Age: 91 Year
  Sex: Female

DRUGS (186)
  1. LACIDIPINE [Concomitant]
     Active Substance: LACIDIPINE
     Indication: HYPERTENSION
     Dosage: 4 MG, UNK, MORE THAN 3 MON THS BEFORE VISIT 1
     Route: 048
  2. CAPTOPRIL. [Concomitant]
     Active Substance: CAPTOPRIL
     Dosage: 12.5 MG, UNK
     Route: 048
     Dates: start: 20171129, end: 20171203
  3. EXFORGE [Concomitant]
     Active Substance: AMLODIPINE BESYLATE\VALSARTAN
     Dosage: 1 DF, UNK
     Route: 048
     Dates: start: 20171211, end: 20171211
  4. FUROSEMIDE. [Concomitant]
     Active Substance: FUROSEMIDE
     Indication: HYPERTENSION
     Dosage: 20 MG, UNK
     Route: 042
     Dates: start: 20171015, end: 20171015
  5. FUROSEMIDE. [Concomitant]
     Active Substance: FUROSEMIDE
     Dosage: 20 MG, UNK
     Route: 042
     Dates: start: 20160325, end: 20160325
  6. NORMAL SALINE [Concomitant]
     Active Substance: SODIUM CHLORIDE
     Dosage: 500 ML, UNK
     Route: 042
     Dates: start: 20171018, end: 20171019
  7. INSULIN DETEMIR [Concomitant]
     Active Substance: INSULIN DETEMIR
     Dosage: 14 U, UNK
     Route: 058
     Dates: start: 20171024, end: 20171024
  8. INSULIN DETEMIR [Concomitant]
     Active Substance: INSULIN DETEMIR
     Dosage: 14 U, UNK
     Route: 058
     Dates: start: 20171024, end: 20171025
  9. ISOPHANE HUMAN INSULIN [Concomitant]
     Active Substance: INSULIN HUMAN
     Indication: TYPE 2 DIABETES MELLITUS
     Dosage: 8 U, UNK
     Route: 058
     Dates: start: 20171025, end: 20171026
  10. METFORMIN [Concomitant]
     Active Substance: METFORMIN HYDROCHLORIDE
     Dosage: 500 MG, UNK
     Route: 048
     Dates: start: 20171206, end: 20171211
  11. NICORANDIL [Concomitant]
     Active Substance: NICORANDIL
     Indication: HYPERTENSION
     Dosage: 5 MG, UNK
     Route: 048
     Dates: start: 20171018, end: 20171024
  12. INSULIN [Concomitant]
     Active Substance: INSULIN NOS
     Dosage: 6 U, UNK
     Route: 058
     Dates: start: 20171014, end: 20171014
  13. INSULIN [Concomitant]
     Active Substance: INSULIN NOS
     Dosage: 7 U, UNK
     Route: 058
     Dates: start: 20171022, end: 20171022
  14. INSULIN [Concomitant]
     Active Substance: INSULIN NOS
     Dosage: 6 U, UNK
     Route: 058
     Dates: start: 20171123, end: 20171130
  15. REPAGLINIDE. [Concomitant]
     Active Substance: REPAGLINIDE
     Dosage: 0.5 MG, UNK
     Route: 048
     Dates: start: 20171201, end: 20171207
  16. SODIUM CHLORIDE. [Concomitant]
     Active Substance: SODIUM CHLORIDE
     Dosage: 500 ML, UNK
     Route: 042
     Dates: start: 20171129, end: 20171129
  17. SODIUM CHLORIDE. [Concomitant]
     Active Substance: SODIUM CHLORIDE
     Dosage: 500 ML, UNK
     Route: 042
     Dates: start: 20171210, end: 20171210
  18. TASIGNA [Suspect]
     Active Substance: NILOTINIB
     Dosage: 600 OT, UNK
     Route: 048
     Dates: start: 20160629, end: 20171211
  19. PROPRANOLOL [Concomitant]
     Active Substance: PROPRANOLOL HYDROCHLORIDE
     Indication: ARRHYTHMIA
     Dosage: 5 MG, UNK, MORE THAN 3 MONTHS BEFORE VISIT 1
     Route: 048
  20. ESTAZOLAM. [Concomitant]
     Active Substance: ESTAZOLAM
     Dosage: 2 MG, UNK
     Route: 048
     Dates: start: 20171205, end: 20171206
  21. HEPARIN [Concomitant]
     Active Substance: HEPARIN SODIUM
     Indication: PROPHYLAXIS
     Dosage: 5 ML, UNK
     Route: 042
     Dates: start: 20171020, end: 20171020
  22. INSULIN DETEMIR [Concomitant]
     Active Substance: INSULIN DETEMIR
     Dosage: 10 U, UNK
     Route: 058
     Dates: start: 20171022, end: 20171022
  23. INSULIN DETEMIR [Concomitant]
     Active Substance: INSULIN DETEMIR
     Dosage: 14 U, UNK
     Route: 058
     Dates: start: 20171023, end: 20171023
  24. INSULIN DETEMIR [Concomitant]
     Active Substance: INSULIN DETEMIR
     Dosage: 14 U, UNK
     Route: 058
     Dates: start: 20171023, end: 20171024
  25. IOHEXOL [Concomitant]
     Active Substance: IOHEXOL
     Indication: COMPUTERISED TOMOGRAM
     Dosage: 525 MG, UNK
     Route: 042
     Dates: start: 20171016, end: 20171016
  26. ISOSORBIDE-5-MONONITRATE [Concomitant]
     Active Substance: ISOSORBIDE MONONITRATE
     Dosage: 20 MG, UNK
     Route: 048
     Dates: start: 20171211, end: 20171211
  27. LIDOCAINE. [Concomitant]
     Active Substance: LIDOCAINE
     Indication: PROPHYLAXIS
     Dosage: 20 ML, UNK
     Route: 065
     Dates: start: 20171020, end: 20171020
  28. NICARDIPINE [Concomitant]
     Active Substance: NICARDIPINE
     Dosage: 10 MG, UNK
     Route: 042
     Dates: start: 20171013, end: 20171013
  29. NICORANDIL [Concomitant]
     Active Substance: NICORANDIL
     Dosage: 5 MG, UNK
     Route: 048
     Dates: start: 20171123, end: 20171129
  30. INSULIN [Concomitant]
     Active Substance: INSULIN NOS
     Dosage: 4 U, UNK (100 IU/ ML)
     Route: 058
     Dates: start: 20171012, end: 20171012
  31. INSULIN [Concomitant]
     Active Substance: INSULIN NOS
     Dosage: 10 U, UNK
     Route: 058
     Dates: start: 20171020, end: 20171020
  32. INSULIN [Concomitant]
     Active Substance: INSULIN NOS
     Dosage: 6 U, UNK
     Route: 058
     Dates: start: 20171024, end: 20171024
  33. INSULIN [Concomitant]
     Active Substance: INSULIN NOS
     Dosage: 10 U, UNK
     Route: 042
     Dates: start: 20171106, end: 20171106
  34. REPAGLINIDE. [Concomitant]
     Active Substance: REPAGLINIDE
     Dosage: 0.5 MG, UNK
     Route: 048
     Dates: start: 20171207, end: 20171211
  35. SODIUM CHLORIDE. [Concomitant]
     Active Substance: SODIUM CHLORIDE
     Dosage: 500 ML, UNK
     Route: 042
     Dates: start: 20171025, end: 20171025
  36. SODIUM CHLORIDE. [Concomitant]
     Active Substance: SODIUM CHLORIDE
     Dosage: 500 ML, UNK
     Route: 042
     Dates: start: 20171128, end: 20171128
  37. TRAZODONE [Concomitant]
     Active Substance: TRAZODONE HYDROCHLORIDE
     Dosage: 50 MG, UNK
     Route: 048
     Dates: start: 20171205, end: 20171211
  38. TRAZODONE [Concomitant]
     Active Substance: TRAZODONE HYDROCHLORIDE
     Dosage: 50 MG, UNK
     Route: 048
     Dates: start: 20171211, end: 20171211
  39. VALSARTAN. [Concomitant]
     Active Substance: VALSARTAN
     Dosage: 80 MG, UNK
     Route: 048
     Dates: start: 20171129, end: 20171129
  40. WARFARIN [Concomitant]
     Active Substance: WARFARIN
     Indication: PROPHYLAXIS
     Dosage: 2.5 MG, UNK, MORE THAN 3 MONTHS BEFORE VISIT 1
     Route: 048
  41. BISACODYL. [Concomitant]
     Active Substance: BISACODYL
     Dosage: 20 MG, UNK
     Route: 054
     Dates: start: 20171112, end: 20171112
  42. BISACODYL. [Concomitant]
     Active Substance: BISACODYL
     Dosage: 20 MG, UNK
     Route: 054
     Dates: start: 20171116, end: 20171116
  43. ESTAZOLAM. [Concomitant]
     Active Substance: ESTAZOLAM
     Dosage: 2 MG, UNK
     Route: 048
     Dates: start: 20171117, end: 20171123
  44. ESTAZOLAM. [Concomitant]
     Active Substance: ESTAZOLAM
     Dosage: 2 MG, UNK
     Route: 048
     Dates: start: 20171123, end: 20171129
  45. FUROSEMIDE. [Concomitant]
     Active Substance: FUROSEMIDE
     Dosage: 20 MG, UNK
     Route: 048
     Dates: start: 20171117, end: 20171123
  46. GLUCOSE [Concomitant]
     Active Substance: DEXTROSE
     Dosage: 40 ML, UNK
     Route: 042
     Dates: start: 20171122, end: 20171122
  47. INSULIN DETEMIR [Concomitant]
     Active Substance: INSULIN DETEMIR
     Dosage: 10 U, UNK
     Route: 058
     Dates: start: 20171021, end: 20171022
  48. ISOSORBIDE-5-MONONITRATE [Concomitant]
     Active Substance: ISOSORBIDE MONONITRATE
     Dosage: 20 MG, UNK
     Route: 048
     Dates: start: 20171113, end: 20171117
  49. ISOSORBIDE-5-MONONITRATE [Concomitant]
     Active Substance: ISOSORBIDE MONONITRATE
     Dosage: 20 MG, UNK
     Route: 048
     Dates: start: 20171129, end: 20171205
  50. NICARDIPINE [Concomitant]
     Active Substance: NICARDIPINE
     Indication: HYPERTENSION
     Dosage: 0.1 MG, UNK (10 MG/ 10 ML/ AMP)
     Route: 042
     Dates: start: 20171012, end: 20171012
  51. NICORANDIL [Concomitant]
     Active Substance: NICORANDIL
     Dosage: 5 MG, UNK
     Route: 048
     Dates: start: 20171112, end: 20171115
  52. NICORANDIL [Concomitant]
     Active Substance: NICORANDIL
     Dosage: 5 MG, UNK
     Route: 048
     Dates: start: 20171129, end: 20171205
  53. INSULIN [Concomitant]
     Active Substance: INSULIN NOS
     Dosage: 3 U, UNK
     Route: 058
     Dates: start: 20171016, end: 20171016
  54. INSULIN [Concomitant]
     Active Substance: INSULIN NOS
     Dosage: 8 U, UNK
     Route: 058
     Dates: start: 20171021, end: 20171022
  55. INSULIN [Concomitant]
     Active Substance: INSULIN NOS
     Dosage: 8 U, UNK
     Route: 058
     Dates: start: 20171025, end: 20171025
  56. INSULIN [Concomitant]
     Active Substance: INSULIN NOS
     Dosage: 4 U, UNK
     Route: 058
     Dates: start: 20171031, end: 20171031
  57. REPAGLINIDE. [Concomitant]
     Active Substance: REPAGLINIDE
     Dosage: 0.5 MG, UNK
     Route: 048
     Dates: start: 20171211, end: 20171211
  58. SENNOSIDE [Concomitant]
     Active Substance: SENNOSIDES
     Dosage: 40 MG, UNK
     Route: 048
     Dates: start: 20171014, end: 20171014
  59. SENNOSIDE [Concomitant]
     Active Substance: SENNOSIDES
     Dosage: 40 MG, UNK
     Route: 048
     Dates: start: 20171021, end: 20171027
  60. SENNOSIDE [Concomitant]
     Active Substance: SENNOSIDES
     Dosage: 40 MG, UNK
     Route: 048
     Dates: start: 20171108, end: 20171113
  61. SENNOSIDE [Concomitant]
     Active Substance: SENNOSIDES
     Dosage: 40 MG, UNK
     Route: 048
     Dates: start: 20171129, end: 20171205
  62. SODIUM CHLORIDE. [Concomitant]
     Active Substance: SODIUM CHLORIDE
     Dosage: 500 ML, UNK
     Route: 042
     Dates: start: 20171210, end: 20171211
  63. TRAZODONE [Concomitant]
     Active Substance: TRAZODONE HYDROCHLORIDE
     Dosage: 50 MG, UNK
     Route: 048
     Dates: start: 20171129, end: 20171205
  64. TASIGNA [Suspect]
     Active Substance: NILOTINIB
     Dosage: 600 OT, UNK
     Route: 048
     Dates: start: 20160322, end: 20160501
  65. BISACODYL. [Concomitant]
     Active Substance: BISACODYL
     Dosage: 20 MG, UNK
     Route: 054
     Dates: start: 20171106, end: 20171106
  66. BISACODYL. [Concomitant]
     Active Substance: BISACODYL
     Dosage: 20 MG, UNK
     Route: 054
     Dates: start: 20171130, end: 20171130
  67. CAPTOPRIL. [Concomitant]
     Active Substance: CAPTOPRIL
     Indication: ARRHYTHMIA
     Dosage: 25 MG, UNK
     Route: 048
     Dates: start: 20171017, end: 20171017
  68. CAPTOPRIL. [Concomitant]
     Active Substance: CAPTOPRIL
     Dosage: 25 MG, UNK
     Route: 048
     Dates: start: 20171028, end: 20171028
  69. CAPTOPRIL. [Concomitant]
     Active Substance: CAPTOPRIL
     Dosage: 25 MG, UNK
     Route: 048
     Dates: start: 20171106, end: 20171106
  70. CAPTOPRIL. [Concomitant]
     Active Substance: CAPTOPRIL
     Dosage: 12.5 MG, UNK
     Route: 048
     Dates: start: 20171113, end: 20171117
  71. CAPTOPRIL. [Concomitant]
     Active Substance: CAPTOPRIL
     Dosage: 12.5 MG, UNK
     Route: 048
     Dates: start: 20171117, end: 20171123
  72. CAPTOPRIL. [Concomitant]
     Active Substance: CAPTOPRIL
     Dosage: 25 MG, UNK
     Route: 048
     Dates: start: 20171209, end: 20171211
  73. EXFORGE HCT [Concomitant]
     Active Substance: AMLODIPINE BESYLATE\HYDROCHLOROTHIAZIDE\VALSARTAN
     Indication: HYPERTENSION
     Dosage: 12.5 MG, UNK
     Route: 048
     Dates: start: 20171209, end: 20171209
  74. INSULIN DETEMIR [Concomitant]
     Active Substance: INSULIN DETEMIR
     Dosage: 7 U, UNK
     Route: 058
     Dates: start: 20171021, end: 20171021
  75. NICORANDIL [Concomitant]
     Active Substance: NICORANDIL
     Dosage: 5 MG, UNK
     Route: 048
     Dates: start: 20171115, end: 20171117
  76. NICORANDIL [Concomitant]
     Active Substance: NICORANDIL
     Dosage: 5 MG, UNK
     Route: 048
     Dates: start: 20171211, end: 20171211
  77. INSULIN [Concomitant]
     Active Substance: INSULIN NOS
     Indication: TYPE 2 DIABETES MELLITUS
     Dosage: 7 U, UNK (100 IU/ ML 10 ML/ VIAL)
     Route: 042
     Dates: start: 20171011, end: 20171012
  78. INSULIN [Concomitant]
     Active Substance: INSULIN NOS
     Dosage: 4 U, UNK
     Route: 042
     Dates: start: 20171016, end: 20171016
  79. INSULIN [Concomitant]
     Active Substance: INSULIN NOS
     Dosage: 6 U, UNK
     Route: 058
     Dates: start: 20171105, end: 20171111
  80. INSULIN [Concomitant]
     Active Substance: INSULIN NOS
     Dosage: 4 U, UNK
     Route: 042
     Dates: start: 20171210, end: 20171210
  81. SENNOSIDE [Concomitant]
     Active Substance: SENNOSIDES
     Dosage: 40 MG, UNK
     Route: 048
     Dates: start: 20171123, end: 20171129
  82. SODIUM CHLORIDE. [Concomitant]
     Active Substance: SODIUM CHLORIDE
     Dosage: 500 ML, UNK
     Route: 042
     Dates: start: 20171110, end: 20171113
  83. TRIAMCINOLONE [Concomitant]
     Active Substance: TRIAMCINOLONE
     Indication: PROPHYLAXIS
     Dosage: 6 G, UNK
     Route: 065
     Dates: start: 20171031, end: 20171031
  84. TASIGNA [Suspect]
     Active Substance: NILOTINIB
     Indication: CHRONIC MYELOID LEUKAEMIA
     Dosage: 600 OT, UNK
     Route: 048
     Dates: start: 20160302, end: 20160308
  85. TASIGNA [Suspect]
     Active Substance: NILOTINIB
     Dosage: 450 OT, UNK
     Route: 048
     Dates: start: 20160502, end: 20160628
  86. BISACODYL. [Concomitant]
     Active Substance: BISACODYL
     Dosage: 20 MG, UNK
     Route: 054
     Dates: start: 20171028, end: 20171028
  87. COMBIVENT [Concomitant]
     Active Substance: ALBUTEROL SULFATE\IPRATROPIUM BROMIDE
     Indication: PRODUCTIVE COUGH
     Dosage: 2.5 ML, UNK
     Route: 055
     Dates: start: 20171012, end: 20171015
  88. ESTAZOLAM. [Concomitant]
     Active Substance: ESTAZOLAM
     Dosage: 2 MG, UNK
     Route: 048
     Dates: start: 20171112, end: 20171117
  89. EXFORGE [Concomitant]
     Active Substance: AMLODIPINE BESYLATE\VALSARTAN
     Dosage: 1 DF, UNK
     Route: 048
     Dates: start: 20171205, end: 20171211
  90. GLUCOSE [Concomitant]
     Active Substance: DEXTROSE
     Dosage: 40 ML, UNK
     Route: 042
     Dates: start: 20171106, end: 20171106
  91. GLUCOSE [Concomitant]
     Active Substance: DEXTROSE
     Dosage: 40 ML, UNK
     Route: 042
     Dates: start: 20171111, end: 20171111
  92. GLUCOSE [Concomitant]
     Active Substance: DEXTROSE
     Dosage: 40 ML, UNK
     Route: 042
     Dates: start: 20171210, end: 20171210
  93. NORMAL SALINE [Concomitant]
     Active Substance: SODIUM CHLORIDE
     Dosage: 500 ML, UNK
     Route: 042
     Dates: start: 20171016, end: 20171016
  94. INSULIN DETEMIR [Concomitant]
     Active Substance: INSULIN DETEMIR
     Dosage: 4 U, UNK
     Route: 058
     Dates: start: 20171019, end: 20171020
  95. INSULIN DETEMIR [Concomitant]
     Active Substance: INSULIN DETEMIR
     Dosage: 10 U, UNK
     Route: 058
     Dates: start: 20171020, end: 20171020
  96. ISOPHANE HUMAN INSULIN [Concomitant]
     Active Substance: INSULIN HUMAN
     Dosage: 12 U, UNK
     Route: 058
     Dates: start: 20171026, end: 20171031
  97. ISOSORBIDE-5-MONONITRATE [Concomitant]
     Active Substance: ISOSORBIDE MONONITRATE
     Dosage: 20 MG, UNK
     Route: 048
     Dates: start: 20171205, end: 20171211
  98. LOSARTAN. [Concomitant]
     Active Substance: LOSARTAN
     Indication: HYPERTENSION
     Dosage: 50 MG, UNK
     Route: 048
     Dates: start: 20171012, end: 20171017
  99. NICORANDIL [Concomitant]
     Active Substance: NICORANDIL
     Dosage: 5 MG, UNK
     Route: 048
     Dates: start: 20171117, end: 20171123
  100. INSULIN [Concomitant]
     Active Substance: INSULIN NOS
     Dosage: 10 U, UNK
     Route: 042
     Dates: start: 20171016, end: 20171016
  101. INSULIN [Concomitant]
     Active Substance: INSULIN NOS
     Dosage: 5 U, UNK
     Route: 042
     Dates: start: 20171016, end: 20171016
  102. INSULIN [Concomitant]
     Active Substance: INSULIN NOS
     Dosage: 10 U, UNK
     Route: 058
     Dates: start: 20171022, end: 20171022
  103. INSULIN [Concomitant]
     Active Substance: INSULIN NOS
     Dosage: 3 U, UNK
     Route: 058
     Dates: start: 20171023, end: 20171023
  104. INSULIN [Concomitant]
     Active Substance: INSULIN NOS
     Dosage: 5 U, UNK
     Route: 058
     Dates: start: 20171024, end: 20171024
  105. INSULIN [Concomitant]
     Active Substance: INSULIN NOS
     Dosage: 8 U, UNK
     Route: 058
     Dates: start: 20171122, end: 20171123
  106. SENNOSIDE [Concomitant]
     Active Substance: SENNOSIDES
     Indication: PROPHYLAXIS
     Dosage: 40 MG, UNK
     Route: 048
     Dates: start: 20171012, end: 20171012
  107. SENNOSIDE [Concomitant]
     Active Substance: SENNOSIDES
     Dosage: 40 MG, UNK
     Route: 048
     Dates: start: 20171021, end: 20171021
  108. SENNOSIDE [Concomitant]
     Active Substance: SENNOSIDES
     Dosage: 40 MG, UNK
     Route: 048
     Dates: start: 20171113, end: 20171117
  109. SODIUM CHLORIDE. [Concomitant]
     Active Substance: SODIUM CHLORIDE
     Indication: PRODUCT USED FOR UNKNOWN INDICATION
     Dosage: 250 ML, UNK
     Route: 042
     Dates: start: 20171016, end: 20171016
  110. SODIUM CHLORIDE. [Concomitant]
     Active Substance: SODIUM CHLORIDE
     Dosage: 500 ML, UNK
     Route: 042
     Dates: start: 20171016, end: 20171016
  111. SODIUM CHLORIDE. [Concomitant]
     Active Substance: SODIUM CHLORIDE
     Dosage: 500 ML, UNK
     Route: 042
     Dates: start: 20171117, end: 20171117
  112. TRAZODONE [Concomitant]
     Active Substance: TRAZODONE HYDROCHLORIDE
     Dosage: 50 MG, UNK
     Route: 048
     Dates: start: 20171123, end: 20171129
  113. TASIGNA [Suspect]
     Active Substance: NILOTINIB
     Dosage: 300 OT, UNK
     Route: 048
     Dates: start: 20160309, end: 20160321
  114. ISOSORBIDE DINITRATE. [Concomitant]
     Active Substance: ISOSORBIDE DINITRATE
     Dosage: 5 MG, UNK
     Route: 048
     Dates: start: 20171012, end: 20171012
  115. VALSARTAN. [Concomitant]
     Active Substance: VALSARTAN
     Indication: HYPERTENSION
     Dosage: 160 MG, UNK, MORE THAN 3 MONTHS BEFORE VISIT 1
     Route: 048
  116. BISACODYL. [Concomitant]
     Active Substance: BISACODYL
     Dosage: 20 MG, UNK
     Route: 054
     Dates: start: 20171204, end: 20171204
  117. CAPTOPRIL. [Concomitant]
     Active Substance: CAPTOPRIL
     Dosage: 25 MG, UNK
     Route: 048
     Dates: start: 20171111, end: 20171111
  118. CAPTOPRIL. [Concomitant]
     Active Substance: CAPTOPRIL
     Dosage: 25 MG, UNK
     Route: 048
     Dates: start: 20171203, end: 20171209
  119. CAPTOPRIL. [Concomitant]
     Active Substance: CAPTOPRIL
     Dosage: 25 MG, UNK
     Route: 048
     Dates: start: 20171211, end: 20171211
  120. COMBIVENT [Concomitant]
     Active Substance: ALBUTEROL SULFATE\IPRATROPIUM BROMIDE
     Dosage: 2.5 ML, UNK
     Route: 055
     Dates: start: 20171015, end: 20171016
  121. GLUCOSE [Concomitant]
     Active Substance: DEXTROSE
     Indication: TYPE 2 DIABETES MELLITUS
     Dosage: 40 ML, UNK (20 ML/ AMP)
     Route: 042
     Dates: start: 20171016, end: 20171016
  122. NORMAL SALINE [Concomitant]
     Active Substance: SODIUM CHLORIDE
     Indication: TYPE 2 DIABETES MELLITUS
     Dosage: 1000 ML, UNK
     Route: 042
     Dates: start: 20171016, end: 20171016
  123. NORMAL SALINE [Concomitant]
     Active Substance: SODIUM CHLORIDE
     Dosage: 1500 ML, UNK
     Route: 042
     Dates: start: 20171016, end: 20171018
  124. INSULIN DETEMIR [Concomitant]
     Active Substance: INSULIN DETEMIR
     Dosage: 5 U, UNK
     Route: 058
     Dates: start: 20171020, end: 20171021
  125. ISOSORBIDE-5-MONONITRATE [Concomitant]
     Active Substance: ISOSORBIDE MONONITRATE
     Indication: ARRHYTHMIA
     Dosage: 20 MG, UNK
     Route: 048
     Dates: start: 20171109, end: 20171113
  126. MAGNESIUM OXIDE. [Concomitant]
     Active Substance: MAGNESIUM OXIDE
     Indication: PROPHYLAXIS
     Dosage: 250 MG, UNK
     Route: 048
     Dates: start: 20171012, end: 20171016
  127. NICORANDIL [Concomitant]
     Active Substance: NICORANDIL
     Dosage: 5 MG, UNK
     Route: 048
     Dates: start: 20171106, end: 20171112
  128. NICORANDIL [Concomitant]
     Active Substance: NICORANDIL
     Dosage: 5 MG, UNK
     Route: 048
     Dates: start: 20171205, end: 20171211
  129. INSULIN [Concomitant]
     Active Substance: INSULIN NOS
     Dosage: 8 U, UNK
     Route: 058
     Dates: start: 20171013, end: 20171013
  130. INSULIN [Concomitant]
     Active Substance: INSULIN NOS
     Dosage: 5 U, UNK
     Route: 042
     Dates: start: 20171016, end: 20171019
  131. INSULIN [Concomitant]
     Active Substance: INSULIN NOS
     Dosage: 4 U, UNK
     Route: 058
     Dates: start: 20171031, end: 20171105
  132. REPAGLINIDE. [Concomitant]
     Active Substance: REPAGLINIDE
     Indication: TYPE 2 DIABETES MELLITUS
     Dosage: 0.5 MG, UNK
     Route: 048
     Dates: start: 20171201, end: 20171201
  133. SENNOSIDE [Concomitant]
     Active Substance: SENNOSIDES
     Dosage: 40 MG, UNK
     Route: 048
     Dates: start: 20171102, end: 20171108
  134. SENNOSIDE [Concomitant]
     Active Substance: SENNOSIDES
     Dosage: 40 MG, UNK
     Route: 048
     Dates: start: 20171211, end: 20171211
  135. SODIUM CHLORIDE. [Concomitant]
     Active Substance: SODIUM CHLORIDE
     Dosage: 500 ML, UNK
     Route: 042
     Dates: start: 20171022, end: 20171029
  136. SODIUM CHLORIDE. [Concomitant]
     Active Substance: SODIUM CHLORIDE
     Dosage: 500 ML, UNK
     Route: 042
     Dates: start: 20171029, end: 20171104
  137. SODIUM CHLORIDE. [Concomitant]
     Active Substance: SODIUM CHLORIDE
     Dosage: 500 ML, UNK
     Route: 042
     Dates: start: 20171113, end: 20171117
  138. SODIUM CHLORIDE. [Concomitant]
     Active Substance: SODIUM CHLORIDE
     Dosage: 500 ML, UNK
     Route: 042
     Dates: start: 20171127, end: 20171127
  139. TRAZODONE [Concomitant]
     Active Substance: TRAZODONE HYDROCHLORIDE
     Indication: INSOMNIA
     Dosage: 50 MG, UNK
     Route: 048
     Dates: start: 20171114, end: 20171117
  140. TRAZODONE [Concomitant]
     Active Substance: TRAZODONE HYDROCHLORIDE
     Dosage: 50 MG, UNK
     Route: 048
     Dates: start: 20171117, end: 20171123
  141. TRICHLORMETHIAZIDE [Concomitant]
     Active Substance: TRICHLORMETHIAZIDE
     Indication: HYPERTENSION
     Dosage: 2 MG, UNK
     Route: 048
     Dates: start: 20171012, end: 20171012
  142. DOXAZOSIN [Concomitant]
     Active Substance: DOXAZOSIN MESYLATE
     Indication: HYPERTENSION
     Dosage: 4 MG, UNK, MORE THAN 3 MONTHS BEFORE VISIT 1
     Route: 048
  143. ALPRAZOLAM. [Concomitant]
     Active Substance: ALPRAZOLAM
     Indication: INSOMNIA
     Dosage: 0.25 MG, UNK, MORE THAN 3 MONTHS BEFORE VISIT 1
     Route: 048
     Dates: end: 20160218
  144. AMLODIPINE BESYLATE. [Concomitant]
     Active Substance: AMLODIPINE BESYLATE
     Dosage: 5 MG, UNK
     Route: 048
     Dates: start: 20171123, end: 20171129
  145. AMLODIPINE BESYLATE. [Concomitant]
     Active Substance: AMLODIPINE BESYLATE
     Dosage: 5 MG, UNK
     Route: 048
     Dates: start: 20171129, end: 20171129
  146. BISACODYL. [Concomitant]
     Active Substance: BISACODYL
     Indication: PROPHYLAXIS
     Dosage: 10 MG, UNK
     Route: 054
     Dates: start: 20171019, end: 20171019
  147. CAPTOPRIL. [Concomitant]
     Active Substance: CAPTOPRIL
     Dosage: 25 MG, UNK
     Route: 048
     Dates: start: 20171111, end: 20171113
  148. CAPTOPRIL. [Concomitant]
     Active Substance: CAPTOPRIL
     Dosage: 12.5 MG, UNK
     Route: 048
     Dates: start: 20171123, end: 20171129
  149. ESTAZOLAM. [Concomitant]
     Active Substance: ESTAZOLAM
     Dosage: 2 MG, UNK
     Route: 048
     Dates: start: 20171106, end: 20171112
  150. EXFORGE [Concomitant]
     Active Substance: AMLODIPINE BESYLATE\VALSARTAN
     Indication: HYPERTENSION
     Dosage: 1 DF, UNK
     Route: 048
     Dates: start: 20171123, end: 20171205
  151. ISOPHANE HUMAN INSULIN [Concomitant]
     Active Substance: INSULIN HUMAN
     Dosage: 4 U, UNK
     Route: 058
     Dates: start: 20171031, end: 20171031
  152. ISOSORBIDE-5-MONONITRATE [Concomitant]
     Active Substance: ISOSORBIDE MONONITRATE
     Dosage: 20 MG, UNK
     Route: 048
     Dates: start: 20171123, end: 20171129
  153. METFORMIN [Concomitant]
     Active Substance: METFORMIN HYDROCHLORIDE
     Indication: TYPE 2 DIABETES MELLITUS
     Dosage: 500 MG, UNK
     Route: 048
     Dates: start: 20171130, end: 20171206
  154. INSULIN [Concomitant]
     Active Substance: INSULIN NOS
     Dosage: 10 U, UNK
     Route: 058
     Dates: start: 20171013, end: 20171013
  155. INSULIN [Concomitant]
     Active Substance: INSULIN NOS
     Dosage: 3 U, UNK
     Route: 058
     Dates: start: 20171014, end: 20171014
  156. INSULIN [Concomitant]
     Active Substance: INSULIN NOS
     Dosage: 3 U, UNK
     Route: 058
     Dates: start: 20171015, end: 20171015
  157. INSULIN [Concomitant]
     Active Substance: INSULIN NOS
     Dosage: 5 U, UNK
     Route: 058
     Dates: start: 20171021, end: 20171021
  158. INSULIN [Concomitant]
     Active Substance: INSULIN NOS
     Dosage: 8 U, UNK
     Route: 058
     Dates: start: 20171026, end: 20171031
  159. SENNOSIDE [Concomitant]
     Active Substance: SENNOSIDES
     Dosage: 40 MG, UNK
     Route: 048
     Dates: start: 20171027, end: 20171102
  160. SODIUM CHLORIDE. [Concomitant]
     Active Substance: SODIUM CHLORIDE
     Dosage: 500 ML, UNK
     Route: 042
     Dates: start: 20171004, end: 20171110
  161. ISOSORBIDE DINITRATE. [Concomitant]
     Active Substance: ISOSORBIDE DINITRATE
     Indication: MYOCARDIAL ISCHAEMIA
     Dosage: 10 MG, UNK, MORE THAN 3 MONTHS BEFROE VISIT 1
     Route: 048
  162. AMLODIPINE BESYLATE. [Concomitant]
     Active Substance: AMLODIPINE BESYLATE
     Indication: HYPERTENSION
     Dosage: 5 MG, UNK
     Route: 048
     Dates: start: 20171015, end: 20171015
  163. AMLODIPINE BESYLATE. [Concomitant]
     Active Substance: AMLODIPINE BESYLATE
     Dosage: 5 MG, UNK
     Route: 048
     Dates: start: 20171113, end: 20171117
  164. AMLODIPINE BESYLATE. [Concomitant]
     Active Substance: AMLODIPINE BESYLATE
     Dosage: 5 MG, UNK
     Route: 048
     Dates: start: 20171117, end: 20171123
  165. BISACODYL. [Concomitant]
     Active Substance: BISACODYL
     Dosage: 20 MG, UNK
     Route: 054
     Dates: start: 20171126, end: 20171126
  166. DILTIAZEM. [Concomitant]
     Active Substance: DILTIAZEM
     Indication: HYPERTENSION
     Dosage: 30 MG, UNK
     Route: 048
     Dates: start: 20171012, end: 20171012
  167. DILTIAZEM. [Concomitant]
     Active Substance: DILTIAZEM
     Dosage: 30 MG, UNK
     Route: 048
     Dates: start: 20171023, end: 20171023
  168. ESTAZOLAM. [Concomitant]
     Active Substance: ESTAZOLAM
     Indication: INSOMNIA
     Dosage: 2 MG, UNK
     Route: 048
     Dates: start: 20171012, end: 20171018
  169. ESTAZOLAM. [Concomitant]
     Active Substance: ESTAZOLAM
     Dosage: 2 MG, UNK
     Route: 048
     Dates: start: 20171030, end: 20171106
  170. ESTAZOLAM. [Concomitant]
     Active Substance: ESTAZOLAM
     Dosage: 2 MG, UNK
     Route: 048
     Dates: start: 20171129, end: 20171205
  171. EXFORGE HCT [Concomitant]
     Active Substance: AMLODIPINE BESYLATE\HYDROCHLOROTHIAZIDE\VALSARTAN
     Dosage: 12.5 MG, UNK
     Route: 048
     Dates: start: 20171017, end: 20171018
  172. FUROSEMIDE. [Concomitant]
     Active Substance: FUROSEMIDE
     Dosage: 20 MG, UNK
     Route: 048
     Dates: start: 20171108, end: 20171113
  173. INSULIN DETEMIR [Concomitant]
     Active Substance: INSULIN DETEMIR
     Indication: TYPE 2 DIABETES MELLITUS
     Dosage: 5 U, UNK
     Route: 058
     Dates: start: 20171019, end: 20171019
  174. INSULIN DETEMIR [Concomitant]
     Active Substance: INSULIN DETEMIR
     Dosage: 14 U, UNK
     Route: 058
     Dates: start: 20171022, end: 20171023
  175. ISOSORBIDE-5-MONONITRATE [Concomitant]
     Active Substance: ISOSORBIDE MONONITRATE
     Dosage: 20 MG, UNK
     Route: 048
     Dates: start: 20171117, end: 20171123
  176. NICARDIPINE [Concomitant]
     Active Substance: NICARDIPINE
     Dosage: 1 MG, UNK (10 MG/ 1 ML/ AMP)
     Route: 042
     Dates: start: 20171015, end: 20171015
  177. NICORANDIL [Concomitant]
     Active Substance: NICORANDIL
     Dosage: 5 MG, UNK
     Route: 048
     Dates: start: 20171024, end: 20171030
  178. NICORANDIL [Concomitant]
     Active Substance: NICORANDIL
     Dosage: 5 MG, UNK
     Route: 048
     Dates: start: 20171030, end: 20171106
  179. INSULIN [Concomitant]
     Active Substance: INSULIN NOS
     Dosage: 16 U, UNK
     Route: 058
     Dates: start: 20171021, end: 20171021
  180. INSULIN [Concomitant]
     Active Substance: INSULIN NOS
     Dosage: 8 U, UNK
     Route: 058
     Dates: start: 20171120, end: 20171122
  181. INSULIN [Concomitant]
     Active Substance: INSULIN NOS
     Dosage: 6 U, UNK
     Route: 042
     Dates: start: 20171210, end: 20171210
  182. INSULIN [Concomitant]
     Active Substance: INSULIN NOS
     Dosage: 8 U, UNK
     Route: 058
     Dates: start: 20171211, end: 20171211
  183. SENNOSIDE [Concomitant]
     Active Substance: SENNOSIDES
     Dosage: 40 MG, UNK
     Route: 048
     Dates: start: 20171117, end: 20171123
  184. SENNOSIDE [Concomitant]
     Active Substance: SENNOSIDES
     Dosage: 40 MG, UNK
     Route: 048
     Dates: start: 20171205, end: 20171211
  185. SODIUM CHLORIDE. [Concomitant]
     Active Substance: SODIUM CHLORIDE
     Dosage: 500 ML, UNK
     Route: 042
     Dates: start: 20171016, end: 20171022
  186. SODIUM CHLORIDE. [Concomitant]
     Active Substance: SODIUM CHLORIDE
     Dosage: 500 ML, UNK
     Route: 042
     Dates: start: 20171123, end: 20171125

REACTIONS (4)
  - Paralysis [Unknown]
  - Cerebral infarction [Not Recovered/Not Resolved]
  - Motor dysfunction [Unknown]
  - Paresis [Unknown]

NARRATIVE: CASE EVENT DATE: 20171102
